FAERS Safety Report 8792088 (Version 1)
Quarter: 2012Q4

REPORT INFORMATION
  Report Type: 
  Country: US (occurrence: US)
  Receive Date: 20120918
  Receipt Date: 20120918
  Transmission Date: 20130627
  Serious: No
  Sender: FDA-Public Use
  Company Number: US-VERTEX PHARMACEUTICAL INC.-2012-019874

PATIENT
  Age: 58 Year
  Sex: Female
  Weight: 64 kg

DRUGS (3)
  1. VX-950 [Suspect]
     Indication: HEPATITIS C
     Dosage: 750 mg, tid
     Route: 048
     Dates: start: 20120808
  2. PEGINTRON                          /01543001/ [Suspect]
     Indication: HEPATITIS C
     Dosage: 120 ?g, UNK
     Route: 058
     Dates: start: 20120808
  3. RIBAVIRIN [Concomitant]
     Indication: HEPATITIS C
     Dosage: 400 mg in am and 600 mg in pm
     Route: 048
     Dates: start: 20120808

REACTIONS (8)
  - Injection site rash [Unknown]
  - Malaise [Unknown]
  - Abdominal discomfort [Unknown]
  - Asthenia [Unknown]
  - Fatigue [Unknown]
  - Rash generalised [Unknown]
  - Nausea [Unknown]
  - Vomiting [Unknown]
